FAERS Safety Report 8990466 (Version 3)
Quarter: 2013Q1

REPORT INFORMATION
  Report Type: Report from Study
  Country: IE (occurrence: IE)
  Receive Date: 20121228
  Receipt Date: 20130225
  Transmission Date: 20140127
  Serious: Yes (Hospitalization, Other)
  Sender: FDA-Public Use
  Company Number: IE-ASTRAZENECA-2012SE95999

PATIENT
  Age: 8 Month
  Sex: Female

DRUGS (1)
  1. SYNAGIS [Suspect]
     Indication: CHRONIC OBSTRUCTIVE PULMONARY DISEASE
     Route: 030
     Dates: start: 20121022

REACTIONS (4)
  - Bronchitis [Recovered/Resolved]
  - Ear infection [Recovered/Resolved]
  - Lower respiratory tract infection [Recovered/Resolved]
  - Cough [Recovered/Resolved]
